FAERS Safety Report 6456242-7 (Version None)
Quarter: 2009Q4

REPORT INFORMATION
  Report Type: 
  Country: None (occurrence: None)
  Receive Date: 20091125
  Receipt Date: 20091117
  Transmission Date: 20100525
  Serious: Yes (Death, Hospitalization)
  Sender: FDA-Public Use
  Company Number: US-ROCHE-657615

PATIENT
  Sex: Male
  Weight: 69.4 kg

DRUGS (5)
  1. CAPECITABINE [Suspect]
     Indication: COLORECTAL CANCER
     Dosage: DOSE: 1250 MG/M2
     Route: 048
     Dates: start: 20090803, end: 20090919
  2. LORAZEPAM [Concomitant]
     Indication: NAUSEA
     Dosage: INDICATION: ANXIETY, FREQUENCY: Q6 PRN
     Route: 048
     Dates: start: 20070801
  3. FISH OIL [Concomitant]
     Route: 048
  4. ZOCOR [Concomitant]
  5. LOVENOX [Concomitant]
     Route: 058

REACTIONS (2)
  - RENAL FAILURE ACUTE [None]
  - STAPHYLOCOCCAL SEPSIS [None]
